FAERS Safety Report 19295055 (Version 1)
Quarter: 2021Q2

REPORT INFORMATION
  Report Type: Spontaneous
  Country: IT (occurrence: IT)
  Receive Date: 20210524
  Receipt Date: 20210524
  Transmission Date: 20210717
  Serious: Yes (Other)
  Sender: FDA-Public Use
  Company Number: NVSC2021IT105269

PATIENT
  Age: 60 Year
  Sex: Female

DRUGS (2)
  1. QUETIAPINE FUMARATE. [Suspect]
     Active Substance: QUETIAPINE FUMARATE
     Indication: DRUG ABUSE
     Dosage: 1 DF, TOTAL
     Route: 048
     Dates: start: 20210324, end: 20210324
  2. TAVOR (SIMVASTATIN) [Suspect]
     Active Substance: SIMVASTATIN
     Indication: DRUG ABUSE
     Dosage: 1 DF, TOTAL
     Route: 048
     Dates: start: 20210324, end: 20210324

REACTIONS (2)
  - Psychomotor hyperactivity [Unknown]
  - Drug abuse [Unknown]

NARRATIVE: CASE EVENT DATE: 20210324
